FAERS Safety Report 7337179-8 (Version None)
Quarter: 2011Q1

REPORT INFORMATION
  Report Type: 
  Country: None (occurrence: None)
  Receive Date: 20110308
  Receipt Date: 20110302
  Transmission Date: 20110831
  Serious: No
  Sender: FDA-Public Use
  Company Number: US-PFIZER INC-2011009315

PATIENT
  Sex: Female
  Weight: 68 kg

DRUGS (6)
  1. LISINOPRIL [Concomitant]
     Dosage: 10 MG, 1X/DAY
     Dates: start: 20020520, end: 20050209
  2. LOPRESSOR [Concomitant]
     Dosage: 50 MG, 2X/DAY
     Dates: start: 20001001, end: 20050209
  3. FOLIC ACID [Concomitant]
     Dosage: UNK
  4. LIPITOR [Suspect]
     Indication: HYPERLIPIDAEMIA
  5. LIPITOR [Suspect]
     Indication: BLOOD CHOLESTEROL INCREASED
     Dosage: 20 MG, 1X/DAY
     Route: 048
     Dates: start: 19980225, end: 20020111
  6. LIPITOR [Suspect]
     Indication: CARDIAC DISORDER

REACTIONS (1)
  - MUSCULAR WEAKNESS [None]
